FAERS Safety Report 6410536-X (Version None)
Quarter: 2009Q4

REPORT INFORMATION
  Report Type: 
  Country: None (occurrence: None)
  Receive Date: 20091022
  Receipt Date: 20091019
  Transmission Date: 20100525
  Serious: Yes (Death)
  Sender: FDA-Public Use
  Company Number: DK-BRISTOL-MYERS SQUIBB COMPANY-14820740

PATIENT
  Age: 60 Year
  Sex: Male

DRUGS (4)
  1. ORENCIA [Suspect]
     Indication: RHEUMATOID ARTHRITIS
     Route: 042
     Dates: start: 20090226, end: 20090529
  2. METHOTREXATE [Concomitant]
     Dates: start: 20060829, end: 20090529
  3. SALAZOPYRIN [Concomitant]
     Dates: start: 20060829, end: 20081107
  4. PREDNISOLONE [Concomitant]
     Dosage: 29AUG2006 - 27FEB2007  RESTART 05JUN2007 - 05JUN 2007
     Dates: start: 20060829, end: 20070605

REACTIONS (1)
  - SUDDEN DEATH [None]
